FAERS Safety Report 5867073-0 (Version None)
Quarter: 2008Q3

REPORT INFORMATION
  Report Type: 
  Country: None (occurrence: None)
  Receive Date: 20080902
  Receipt Date: 20080827
  Transmission Date: 20090109
  Serious: Yes (Other)
  Sender: FDA-Public Use
  Company Number: B0534516A

PATIENT
  Age: 66 Year
  Sex: Female

DRUGS (10)
  1. SERETIDE [Suspect]
     Indication: ASTHMA
     Dosage: 2PUFF TWICE PER DAY
     Route: 055
  2. VENTOLIN [Suspect]
     Indication: ASTHMA
     Dosage: 100MCG AS REQUIRED
     Route: 055
  3. COLLAGEN [Suspect]
     Indication: ARTHRITIS
  4. ETORICOXIB [Suspect]
     Indication: ARTHRITIS
     Dosage: 120MG PER DAY
     Route: 065
  5. HERBAL MEDICINE [Suspect]
     Indication: ARTHRITIS
  6. LANSOPRAZOLE [Suspect]
     Indication: ANTACID THERAPY
     Dosage: 30MG PER DAY
     Route: 065
  7. LORATADINE [Suspect]
     Dosage: 10MG PER DAY
  8. MONTELUKAST SODIUM [Suspect]
     Indication: ASTHMA
     Dosage: 10MG PER DAY
     Route: 065
  9. QUININE [Suspect]
     Dosage: 300MG PER DAY
  10. THYROXINE [Suspect]
     Indication: HYPERTHYROIDISM
     Dosage: 100MCG PER DAY
     Route: 065

REACTIONS (7)
  - APHONIA [None]
  - CHEST DISCOMFORT [None]
  - COUGH [None]
  - LARYNGEAL INFLAMMATION [None]
  - LOWER RESPIRATORY TRACT INFECTION [None]
  - PNEUMONIA [None]
  - THROAT TIGHTNESS [None]
